FAERS Safety Report 9834595 (Version 1)
Quarter: 2014Q1

REPORT INFORMATION
  Report Type: Spontaneous
  Country: BR (occurrence: BR)
  Receive Date: 20140122
  Receipt Date: 20140122
  Transmission Date: 20141002
  Serious: Yes (Other)
  Sender: FDA-Public Use
  Company Number: BR-PFIZER INC-2014016457

PATIENT
  Age: 85 Year
  Sex: Male
  Weight: 105 kg

DRUGS (1)
  1. XALATAN [Suspect]
     Indication: GLAUCOMA
     Dosage: 3 UG (ONE DROP IN EACH EYE), 3X/DAY
     Route: 047
     Dates: start: 20110116

REACTIONS (3)
  - Neoplasm malignant [Unknown]
  - Spinal pain [Unknown]
  - Inappropriate schedule of drug administration [Not Recovered/Not Resolved]
